FAERS Safety Report 7455053-3 (Version None)
Quarter: 2011Q2

REPORT INFORMATION
  Report Type: 
  Country: None (occurrence: None)
  Receive Date: 20110503
  Receipt Date: 20110414
  Transmission Date: 20111010
  Serious: Yes (Life-Threatening, Hospitalization)
  Sender: FDA-Public Use
  Company Number: US-BAYER-201040887NA

PATIENT
  Age: 37 Year
  Sex: Female
  Weight: 74.376 kg

DRUGS (1)
  1. YAZ [Suspect]
     Indication: ORAL CONTRACEPTION
     Dosage: UNK UNK, UNK
     Route: 048
     Dates: start: 20070401, end: 20071101

REACTIONS (9)
  - ISCHAEMIC STROKE [None]
  - MYOCARDIAL INFARCTION [None]
  - LUNG DISORDER [None]
  - DEEP VEIN THROMBOSIS [None]
  - FATIGUE [None]
  - ASTHENIA [None]
  - VASCULAR INJURY [None]
  - PULMONARY EMBOLISM [None]
  - DEFORMITY [None]
